FAERS Safety Report 8013545-2 (Version None)
Quarter: 2011Q4

REPORT INFORMATION
  Report Type: 
  Country: None (occurrence: None)
  Receive Date: 20111229
  Receipt Date: 20111227
  Transmission Date: 20120403
  Serious: Yes (Other)
  Sender: FDA-Public Use
  Company Number: US-PFIZER INC-2011314386

PATIENT
  Sex: Female
  Weight: 63.5 kg

DRUGS (5)
  1. KLONOPIN [Concomitant]
     Indication: FIBROMYALGIA
     Dosage: 25 MG, 4X/DAY
  2. ULTRAM [Concomitant]
     Indication: FIBROMYALGIA
     Dosage: 50 MG, 4X/DAY
  3. GABAPENTIN [Suspect]
     Indication: FIBROMYALGIA
     Dosage: 100 MG, 3X/DAY
  4. NAPROSYN [Suspect]
     Indication: FIBROMYALGIA
     Dosage: UNK
  5. LYRICA [Suspect]
     Indication: FIBROMYALGIA
     Dosage: 50 MG, TWO TO THREE TIMES A DAY
     Route: 048

REACTIONS (10)
  - MUSCULOSKELETAL STIFFNESS [None]
  - NARCOLEPSY [None]
  - BLISTER [None]
  - HERPES VIRUS INFECTION [None]
  - PAIN IN EXTREMITY [None]
  - OEDEMA PERIPHERAL [None]
  - ARTHRALGIA [None]
  - JOINT SWELLING [None]
  - ABDOMINAL DISCOMFORT [None]
  - SCAR [None]
